FAERS Safety Report 10250261 (Version 1)
Quarter: 2014Q2

REPORT INFORMATION
  Report Type: Spontaneous
  Country: GB (occurrence: GB)
  Receive Date: 20140620
  Receipt Date: 20140620
  Transmission Date: 20141212
  Serious: Yes (Other)
  Sender: FDA-Public Use
  Company Number: GB-TEVA-488180ISR

PATIENT
  Age: 14 Year
  Sex: Male

DRUGS (5)
  1. SERTRALINE [Suspect]
     Indication: DEPRESSION
     Dosage: DOSE INCREASED FROM 100MG TO 150MG
     Route: 048
  2. SERTRALINE [Suspect]
     Indication: DEPRESSION
     Dosage: DOSE INCREASED FROM 100MG TO 150MG
     Route: 048
  3. ARIPIPRAZOLE [Concomitant]
  4. CONCERTA XL [Concomitant]
  5. DUAC [Concomitant]

REACTIONS (4)
  - Convulsion [Recovered/Resolved]
  - Somnolence [Recovered/Resolved]
  - Musculoskeletal stiffness [Recovered/Resolved]
  - Fall [Unknown]
